FAERS Safety Report 6265188-9 (Version None)
Quarter: 2009Q3

REPORT INFORMATION
  Report Type: 
  Country: None (occurrence: None)
  Receive Date: 20090713
  Receipt Date: 20090709
  Transmission Date: 20100115
  Serious: Yes (Death, Other)
  Sender: FDA-Public Use
  Company Number: PHEH2009US05963

PATIENT
  Sex: Male
  Weight: 55 kg

DRUGS (13)
  1. EXJADE [Suspect]
     Indication: SICKLE CELL ANAEMIA
     Dosage: UNKNOWN
  2. EXJADE [Suspect]
     Indication: IRON OVERLOAD
     Dosage: 1000 MG, QD
     Dates: start: 20080201, end: 20090207
  3. HYDROXYUREA [Concomitant]
     Indication: SICKLE CELL ANAEMIA
     Dosage: 500 MG, QD VIA G TUBE
     Dates: start: 20081022, end: 20090425
  4. KEPPRA [Concomitant]
     Indication: CONVULSION
     Dosage: 1000 MG, BID VIA G TUBE
     Dates: start: 20070728, end: 20090425
  5. PHENOBARBITAL [Concomitant]
     Indication: CONVULSION
     Dosage: 300 MG, BID VIA G TUBE
     Dates: start: 20080701, end: 20090425
  6. METOCLOPRAMIDE [Concomitant]
     Indication: GASTROOESOPHAGEAL REFLUX DISEASE
     Dosage: 8 MG, Q6H VIA G TUBE
     Dates: start: 20050101, end: 20090425
  7. PULMICORT [Concomitant]
  8. ALBUTEROL [Concomitant]
  9. POTASSIUM CHLORIDE [Concomitant]
  10. PREVACID [Concomitant]
  11. CIPROFLOXACIN [Concomitant]
     Dosage: INTERMITTENT
  12. BACTRIM [Concomitant]
     Indication: TRACHEITIS
  13. BACTRIM [Concomitant]
     Indication: ABSCESS

REACTIONS (6)
  - BLOOD BILIRUBIN ABNORMAL [None]
  - CARBON DIOXIDE ABNORMAL [None]
  - CARDIAC ARREST [None]
  - OXYGEN SATURATION DECREASED [None]
  - PALLOR [None]
  - TRANSAMINASES INCREASED [None]
